FAERS Safety Report 16810685 (Version 1)
Quarter: 2019Q4

REPORT INFORMATION
  Report Type: Spontaneous
  Country: US (occurrence: US)
  Receive Date: 20190916
  Receipt Date: 20190916
  Transmission Date: 20200122
  Serious: Yes (Disabling)
  Sender: FDA-Public Use
  Company Number: None

PATIENT
  Age: 58 Year
  Sex: Female
  Weight: 60.3 kg

DRUGS (8)
  1. REPATHA [Suspect]
     Active Substance: EVOLOCUMAB
     Indication: TYPE IIA HYPERLIPIDAEMIA
     Dosage: ?          OTHER FREQUENCY:EVERY 14 DAYS;OTHER ROUTE:INJECTED INTO STOMACH?
     Dates: start: 20190524, end: 20190606
  2. ST. JOHN^S WORT [Concomitant]
     Active Substance: ST. JOHN^S WORT
  3. FISH OIL [Concomitant]
     Active Substance: FISH OIL
  4. ASPIRIN. [Concomitant]
     Active Substance: ASPIRIN
  5. METHYL GARD, [Concomitant]
  6. VITAMIN D [Concomitant]
     Active Substance: VITAMIN D NOS
  7. CLEANSE MORE (MAGNESIUM/ALOE VERA [Concomitant]
  8. COQ10 [Concomitant]
     Active Substance: UBIDECARENONE

REACTIONS (4)
  - Rash [None]
  - Viral pharyngitis [None]
  - Small fibre neuropathy [None]
  - Paraesthesia [None]

NARRATIVE: CASE EVENT DATE: 20190616
